FAERS Safety Report 4388157-2 (Version None)
Quarter: 2004Q2

REPORT INFORMATION
  Report Type: 
  Country: None (occurrence: None)
  Receive Date: 20040623
  Receipt Date: 20040608
  Transmission Date: 20050107
  Serious: Yes (Other)
  Sender: FDA-Public Use
  Company Number: US_980808580

PATIENT
  Age: 58 Year
  Sex: Female
  Weight: 73 kg

DRUGS (8)
  1. NPH ILETIN II (PORK) [Suspect]
  2. HUMULIN L [Suspect]
     Dosage: 76 Y/DAY
     Dates: end: 19991101
  3. LENTE ILETIN II (PORK) [Suspect]
     Indication: DIABETES MELLITUS
     Dosage: 86 U/DAY
     Dates: end: 19910101
  4. HUMULIN R [Suspect]
     Indication: DIABETES MELLITUS
  5. HUMULIN N [Suspect]
     Indication: DIABETES MELLITUS NON-INSULIN-DEPENDENT
     Dates: start: 19940101, end: 19960101
  6. LENTE ILETIN (BEEF-PORK) INSULIN ZINC [Suspect]
     Indication: DIABETES MELLITUS
     Dosage: 76 U/DAY
  7. HUMULIN-HUMAN INSULIN (RDNA) UNKNOWN FORMULATION (HU [Suspect]
     Indication: DIABETES MELLITUS
     Dates: start: 19961214, end: 19971201
  8. REGULAR ILETIN II (PORK) [Suspect]

REACTIONS (4)
  - BLOOD GLUCOSE INCREASED [None]
  - EYE HAEMORRHAGE [None]
  - PHARMACEUTICAL PRODUCT COMPLAINT [None]
  - VISUAL DISTURBANCE [None]
